FAERS Safety Report 5134281-6 (Version None)
Quarter: 2006Q4

REPORT INFORMATION
  Report Type: 
  Country: None (occurrence: None)
  Receive Date: 20061019
  Receipt Date: 20061012
  Transmission Date: 20070319
  Serious: Yes (Other)
  Sender: FDA-Public Use
  Company Number: 2006SP004026

PATIENT
  Sex: Male

DRUGS (1)
  1. POSACONAZOLE [Suspect]
     Indication: PROPHYLAXIS
     Dates: end: 20060915

REACTIONS (4)
  - DRUG INEFFECTIVE [None]
  - FUNGAL SEPSIS [None]
  - PANCYTOPENIA [None]
  - TRICHOSPORON INFECTION [None]
